FAERS Safety Report 16886688 (Version 2)
Quarter: 2020Q1

REPORT INFORMATION
  Report Type: Spontaneous
  Country: US (occurrence: US)
  Receive Date: 20191004
  Receipt Date: 20200310
  Transmission Date: 20200409
  Serious: Yes (Hospitalization, Other)
  Sender: FDA-Public Use
  Company Number: US-ASTRAZENECA-2018SF22556

PATIENT
  Age: 17868 Day
  Sex: Female
  Weight: 121.6 kg

DRUGS (39)
  1. METHOTREXATE. [Concomitant]
     Active Substance: METHOTREXATE
  2. AGGRENOX [Concomitant]
     Active Substance: ASPIRIN\DIPYRIDAMOLE
  3. OMEPRAZOLE. [Suspect]
     Active Substance: OMEPRAZOLE
     Indication: GASTROOESOPHAGEAL REFLUX DISEASE
     Route: 065
     Dates: start: 20150209
  4. PROTONIX [Suspect]
     Active Substance: PANTOPRAZOLE SODIUM
     Route: 065
  5. CARISOPRODOL. [Concomitant]
     Active Substance: CARISOPRODOL
  6. ALBUTEROL. [Concomitant]
     Active Substance: ALBUTEROL
  7. FOLIC ACID. [Concomitant]
     Active Substance: FOLIC ACID
  8. GLIMEPIRIDE. [Concomitant]
     Active Substance: GLIMEPIRIDE
  9. ATENOLOL. [Concomitant]
     Active Substance: ATENOLOL
  10. PREDNISONE. [Concomitant]
     Active Substance: PREDNISONE
  11. FLO NASAL SPRAY [Concomitant]
     Indication: MULTIPLE ALLERGIES
     Route: 065
     Dates: start: 2015
  12. ZANTAC [Concomitant]
     Active Substance: RANITIDINE HYDROCHLORIDE
     Dosage: 75
     Route: 065
  13. CARVEDILOL. [Concomitant]
     Active Substance: CARVEDILOL
  14. GABAPENTIN. [Concomitant]
     Active Substance: GABAPENTIN
  15. CRESTOR [Concomitant]
     Active Substance: ROSUVASTATIN CALCIUM
  16. CETRIZINE HCL [Concomitant]
  17. OMEPRAZOLE. [Suspect]
     Active Substance: OMEPRAZOLE
     Indication: GASTROOESOPHAGEAL REFLUX DISEASE
     Route: 065
     Dates: start: 20140815
  18. CLONIDINE. [Concomitant]
     Active Substance: CLONIDINE
  19. DIPHENHYDRAMINE. [Concomitant]
     Active Substance: DIPHENHYDRAMINE
  20. VALSARTAN. [Concomitant]
     Active Substance: VALSARTAN
  21. FLUCONAZOLE. [Concomitant]
     Active Substance: FLUCONAZOLE
  22. OMEPRAZOLE. [Suspect]
     Active Substance: OMEPRAZOLE
     Indication: GASTROOESOPHAGEAL REFLUX DISEASE
     Route: 048
     Dates: start: 20150209
  23. PEPCID [Concomitant]
     Active Substance: FAMOTIDINE
     Route: 065
  24. POTASSIUM CHLORIDE. [Concomitant]
     Active Substance: POTASSIUM CHLORIDE
  25. MORPHINE SULPHATE [Concomitant]
     Active Substance: MORPHINE SULFATE
  26. AMOX [Concomitant]
     Active Substance: UNSPECIFIED INGREDIENT
  27. BYSTOLIC [Concomitant]
     Active Substance: NEBIVOLOL HYDROCHLORIDE
  28. NEXIUM [Suspect]
     Active Substance: ESOMEPRAZOLE MAGNESIUM
     Indication: GASTROOESOPHAGEAL REFLUX DISEASE
     Route: 048
     Dates: start: 2011, end: 2014
  29. NEXIUM [Suspect]
     Active Substance: ESOMEPRAZOLE MAGNESIUM
     Indication: GASTROOESOPHAGEAL REFLUX DISEASE
     Route: 048
     Dates: start: 2010, end: 2014
  30. RANITIDINE. [Concomitant]
     Active Substance: RANITIDINE
     Dosage: GENERIC
     Route: 065
     Dates: start: 20170817
  31. TRAMADOL HCL [Concomitant]
     Active Substance: TRAMADOL HYDROCHLORIDE
  32. HYDROCODON ACETAMINOPHEN [Concomitant]
  33. MELOXICAM. [Concomitant]
     Active Substance: MELOXICAM
  34. PROAIR HFA [Concomitant]
     Active Substance: ALBUTEROL SULFATE
  35. NEXIUM [Suspect]
     Active Substance: ESOMEPRAZOLE MAGNESIUM
     Indication: GASTROOESOPHAGEAL REFLUX DISEASE
     Dosage: GENERIC
     Route: 065
     Dates: start: 2015, end: 2018
  36. NEXIUM [Suspect]
     Active Substance: ESOMEPRAZOLE MAGNESIUM
     Indication: GASTROOESOPHAGEAL REFLUX DISEASE
     Route: 048
     Dates: start: 20150626
  37. LYRICA [Concomitant]
     Active Substance: PREGABALIN
  38. MILNACIPRAN [Concomitant]
     Active Substance: MILNACIPRAN
  39. EPIPEN [Concomitant]
     Active Substance: EPINEPHRINE

REACTIONS (3)
  - Renal failure [Unknown]
  - Acute kidney injury [Not Recovered/Not Resolved]
  - Chronic kidney disease [Unknown]

NARRATIVE: CASE EVENT DATE: 20131226
